FAERS Safety Report 13964261 (Version 1)
Quarter: 2017Q3

REPORT INFORMATION
  Report Type: Spontaneous
  Country: US (occurrence: None)
  Receive Date: 20170913
  Receipt Date: 20170913
  Transmission Date: 20171128
  Serious: Yes (Hospitalization)
  Sender: FDA-Public Use
  Company Number: None

PATIENT
  Age: 63 Year
  Sex: Male
  Weight: 95.84 kg

DRUGS (2)
  1. SACUBITRIL/VALSARTAN [Suspect]
     Active Substance: SACUBITRIL\VALSARTAN
     Indication: HYPERTENSION
     Dosage: 49/51 MG BID PO
     Route: 048
     Dates: start: 20170525, end: 20170615
  2. LISINOPRIL. [Suspect]
     Active Substance: LISINOPRIL
     Indication: HYPERTENSION
     Route: 048
     Dates: start: 20161207, end: 20170525

REACTIONS (4)
  - Nausea [None]
  - Leukocytosis [None]
  - Acute kidney injury [None]
  - Abdominal pain lower [None]

NARRATIVE: CASE EVENT DATE: 20170607
